FAERS Safety Report 7630136-3 (Version None)
Quarter: 2011Q3

REPORT INFORMATION
  Report Type: 
  Country: None (occurrence: None)
  Receive Date: 20110722
  Receipt Date: 20110714
  Transmission Date: 20111222
  Serious: Yes (Hospitalization, Other)
  Sender: FDA-Public Use
  Company Number: US-BAYER-2011-015973

PATIENT
  Age: 23 Year
  Sex: Female
  Weight: 98 kg

DRUGS (14)
  1. YASMIN [Suspect]
     Indication: PREMENSTRUAL SYNDROME
  2. YASMIN [Suspect]
     Indication: CONTRACEPTION
     Dosage: UNK
     Route: 048
     Dates: start: 20050901, end: 20090101
  3. FLUOXETINE [Concomitant]
     Dosage: UNK
     Dates: start: 20070101, end: 20090101
  4. YASMIN [Suspect]
     Indication: ACNE
  5. ANTIBIOTICS [Concomitant]
  6. RESPIRATORY SYSTEM [Concomitant]
  7. TYLENOL-500 [Concomitant]
  8. YAZ [Suspect]
     Indication: CONTRACEPTION
     Dosage: UNK
     Route: 048
     Dates: start: 20050901, end: 20090101
  9. YAZ [Suspect]
     Indication: PREMENSTRUAL SYNDROME
  10. ZITHROMAX [Concomitant]
  11. ORTHO TRI-CYCLEN [Concomitant]
     Dosage: UNK
     Dates: start: 20070908
  12. YAZ [Suspect]
     Indication: ACNE
  13. IBUPROFEN [Concomitant]
  14. MUSCLE RELAXANTS [Concomitant]
     Indication: MUSCLE STRAIN

REACTIONS (4)
  - PULMONARY EMBOLISM [None]
  - THROMBOSIS [None]
  - ANXIETY [None]
  - PAIN [None]
